FAERS Safety Report 7501490-8 (Version None)
Quarter: 2011Q2

REPORT INFORMATION
  Report Type: 
  Country: None (occurrence: None)
  Receive Date: 20110524
  Receipt Date: 20110516
  Transmission Date: 20111010
  Serious: Yes (Other)
  Sender: FDA-Public Use
  Company Number: BR-B.I. PHARMACEUTICALS,INC./RIDGEFIELD-2011-BR-00469BR

PATIENT
  Sex: Female

DRUGS (4)
  1. NIFEDIPINA [Concomitant]
     Indication: MALIGNANT HYPERTENSION
  2. CLONIDINE HYDROCHLORIDE [Suspect]
     Indication: MALIGNANT HYPERTENSION
     Dosage: 0.9 MG
     Route: 048
     Dates: start: 20100101
  3. HIDRALAZINA [Concomitant]
     Indication: MALIGNANT HYPERTENSION
  4. ATENOLOL [Concomitant]
     Indication: MALIGNANT HYPERTENSION

REACTIONS (2)
  - DRUG INEFFECTIVE [None]
  - BLOOD PRESSURE INCREASED [None]
